FAERS Safety Report 20702470 (Version 3)
Quarter: 2022Q4

REPORT INFORMATION
  Report Type: Spontaneous
  Country: US (occurrence: US)
  Receive Date: 20220412
  Receipt Date: 20221219
  Transmission Date: 20230113
  Serious: No
  Sender: FDA-Public Use
  Company Number: US-PFIZER INC-202101871992

PATIENT
  Age: 74 Year
  Sex: Female
  Weight: 78.005 kg

DRUGS (3)
  1. IBRANCE [Suspect]
     Active Substance: PALBOCICLIB
     Dosage: 125 MG, CYCLIC (ONCE A DAY FOR 21 DAYS THEN 7 DAYS OFF)
     Dates: start: 202106
  2. IBRANCE [Suspect]
     Active Substance: PALBOCICLIB
     Dosage: 100 MG
  3. LETROZOLE [Concomitant]
     Active Substance: LETROZOLE
     Dosage: UNK
     Dates: start: 202105

REACTIONS (4)
  - Fatigue [Unknown]
  - Decreased appetite [Unknown]
  - Alopecia [Not Recovered/Not Resolved]
  - Aphthous ulcer [Not Recovered/Not Resolved]
